FAERS Safety Report 8035724-0 (Version None)
Quarter: 2011Q4

REPORT INFORMATION
  Report Type: 
  Country: None (occurrence: None)
  Receive Date: 20111227
  Receipt Date: 20111219
  Transmission Date: 20120403
  Serious: Yes (Other)
  Sender: FDA-Public Use
  Company Number: JP-1189554

PATIENT
  Age: 80 Year
  Sex: Male

DRUGS (6)
  1. TICLOPIDINE HCL [Concomitant]
  2. URINMET [Concomitant]
  3. CINAL [Concomitant]
  4. DIAMOX SRC [Concomitant]
  5. TRAVATAN [Suspect]
     Indication: OPEN ANGLE GLAUCOMA
     Dosage: 1 GTT QD OU OPHTHALMIC
     Route: 047
     Dates: start: 20081122
  6. WARFARIN SODIUM [Concomitant]

REACTIONS (2)
  - VISUAL ACUITY REDUCED [None]
  - CONJUNCTIVITIS ALLERGIC [None]
